FAERS Safety Report 19139989 (Version 4)
Quarter: 2022Q2

REPORT INFORMATION
  Report Type: Other
  Country: US (occurrence: None)
  Receive Date: 20210415
  Receipt Date: 20220506
  Transmission Date: 20220721
  Serious: Yes (Hospitalization)
  Sender: FDA-Public Use
  Company Number: US-ROCHE-2771358

PATIENT
  Age: 68 Year
  Sex: Male

DRUGS (6)
  1. COTELLIC [Suspect]
     Active Substance: COBIMETINIB
     Indication: Soft tissue sarcoma
     Dosage: TAKE 3 TABLET(S) BY MOUTH DAILY ADMINISTER ON DAYS 1 THROUGH 21 OF A 28-DAY TREATMENT CYCLE
     Route: 048
  2. COTELLIC [Suspect]
     Active Substance: COBIMETINIB
     Indication: Malignant melanoma
  3. COTELLIC [Suspect]
     Active Substance: COBIMETINIB
     Indication: Soft tissue sarcoma
  4. ZELBORAF [Suspect]
     Active Substance: VEMURAFENIB
     Indication: Soft tissue sarcoma
     Dosage: TAKE 4 TABLET(S) BY MOUTH EVERY 12 HOURS TAKE WHOLE WITH WATER. TAKE ON AN EMPTY STOMACH, 1 HOUR BEF
     Route: 048
  5. ZELBORAF [Suspect]
     Active Substance: VEMURAFENIB
     Indication: Malignant melanoma
  6. ZELBORAF [Suspect]
     Active Substance: VEMURAFENIB
     Indication: Soft tissue sarcoma

REACTIONS (3)
  - Prostatic disorder [Unknown]
  - Off label use [Unknown]
  - COVID-19 [Unknown]

NARRATIVE: CASE EVENT DATE: 20200501
